FAERS Safety Report 19445093 (Version 1)
Quarter: 2021Q2

REPORT INFORMATION
  Report Type: Spontaneous
  Country: DE (occurrence: DE)
  Receive Date: 20210622
  Receipt Date: 20210622
  Transmission Date: 20210717
  Serious: Yes (Other)
  Sender: FDA-Public Use
  Company Number: DE-AUROBINDO-AUR-APL-2021-026368

PATIENT
  Age: 60 Year
  Sex: Male
  Weight: 71 kg

DRUGS (2)
  1. TRETINOIN. [Suspect]
     Active Substance: TRETINOIN
     Indication: PRIMARY PROGRESSIVE MULTIPLE SCLEROSIS
     Dosage: 90 MILLIGRAM, ONCE A DAY
     Route: 048
     Dates: start: 20160202
  2. PRAMIPEXOLE. [Suspect]
     Active Substance: PRAMIPEXOLE
     Indication: RESTLESS LEGS SYNDROME
     Dosage: 6.7 MILLIGRAM, ONCE A DAY
     Route: 048
     Dates: start: 20160322

REACTIONS (2)
  - Product use in unapproved indication [Recovered/Resolved]
  - Multiple sclerosis [Recovering/Resolving]

NARRATIVE: CASE EVENT DATE: 20160202
